FAERS Safety Report 5637912-7 (Version None)
Quarter: 2008Q1

REPORT INFORMATION
  Report Type: 
  Country: None (occurrence: None)
  Receive Date: 20080222
  Receipt Date: 20080222
  Transmission Date: 20080703
  Serious: Yes (Hospitalization)
  Sender: FDA-Public Use
  Company Number: None

PATIENT
  Age: 69 Year
  Sex: Female
  Weight: 45.3597 kg

DRUGS (3)
  1. CETUXIMAB 100MG UNKNOWN [Suspect]
     Indication: LUNG CANCER METASTATIC
     Dosage: 350MG WEEKLY IV DRIP
     Route: 041
     Dates: start: 20070123, end: 20080114
  2. PEMETREXED 100MG UNKNOWN [Suspect]
     Dosage: 700 MG EVERY 3 WEEKS IV DRIP
     Route: 041
     Dates: start: 20070309, end: 20080107
  3. NAVELBINE [Concomitant]

REACTIONS (2)
  - GASTRIC CANCER [None]
  - PLEURAL EFFUSION [None]
